FAERS Safety Report 4507706-4 (Version None)
Quarter: 2004Q4

REPORT INFORMATION
  Report Type: 
  Country: None (occurrence: None)
  Receive Date: 20040928
  Receipt Date: 20040819
  Transmission Date: 20050328
  Serious: Yes (Death)
  Sender: FDA-Public Use
  Company Number: 04P-163-0264852-00

PATIENT
  Age: 85 Year
  Sex: Female
  Weight: 48.5349 kg

DRUGS (12)
  1. HUMIRA [Suspect]
     Indication: RHEUMATOID ARTHRITIS
     Dosage: 40 MG, 1 IN 2 WK, SUBCUTANEOUS
     Route: 058
     Dates: start: 20030328
  2. LEVOTHYROXINE SODIUM [Concomitant]
  3. AZMACORT [Concomitant]
  4. TAMOXIFEN CITRATE [Concomitant]
  5. SEREVENT [Concomitant]
  6. SALBUTAMOL [Concomitant]
  7. BRIMONIDINE TARTRATE [Concomitant]
  8. AMITRIPTYLINE HCL [Concomitant]
  9. FOLIC ACID [Concomitant]
  10. METHOTREXATE SODIUM [Concomitant]
  11. AMLODIPINE BESYLATE [Concomitant]
  12. PREDNISONE [Concomitant]

REACTIONS (1)
  - DEATH [None]
